FAERS Safety Report 17973649 (Version 1)
Quarter: 2020Q3

REPORT INFORMATION
  Report Type: Spontaneous
  Country: CH (occurrence: SK)
  Receive Date: 20200702
  Receipt Date: 20200702
  Transmission Date: 20201103
  Serious: Yes (Death, Other)
  Sender: FDA-Public Use
  Company Number: SK-ASTELLAS-2020US020796

PATIENT
  Age: 47 Year
  Sex: Female

DRUGS (1)
  1. ISAVUCONAZOLE [Suspect]
     Active Substance: ISAVUCONAZOLE
     Indication: FUSARIUM INFECTION
     Dosage: UNK UNK, ONCE DAILY
     Route: 065
     Dates: start: 201907, end: 202005

REACTIONS (2)
  - Off label use [Unknown]
  - Death [Fatal]
